FAERS Safety Report 6063573-1 (Version None)
Quarter: 2009Q1

REPORT INFORMATION
  Report Type: 
  Country: None (occurrence: None)
  Receive Date: 20090129
  Receipt Date: 20090115
  Transmission Date: 20090719
  Serious: Yes (Hospitalization)
  Sender: FDA-Public Use
  Company Number: 2009S1000915

PATIENT

DRUGS (1)
  1. LEVETIRACETAM [Suspect]
     Dosage: ; ORAL
     Route: 048

REACTIONS (2)
  - CONVULSION [None]
  - STATUS EPILEPTICUS [None]
